FAERS Safety Report 23428913 (Version 1)
Quarter: 2024Q1

REPORT INFORMATION
  Report Type: Spontaneous
  Country: SD (occurrence: SD)
  Receive Date: 20240122
  Receipt Date: 20240122
  Transmission Date: 20240410
  Serious: Yes (Death, Life-Threatening, Hospitalization, Other)
  Sender: FDA-Public Use
  Company Number: SD-EPICPHARMA-SD-2024EPCLIT00062

PATIENT
  Age: 33 Year
  Sex: Female

DRUGS (1)
  1. TRANEXAMIC ACID [Suspect]
     Active Substance: TRANEXAMIC ACID
     Indication: Product used for unknown indication
     Route: 037

REACTIONS (11)
  - Neurotoxicity [Fatal]
  - Hypertension [Fatal]
  - Cardiac arrest [Fatal]
  - Respiratory failure [Fatal]
  - Partial seizures [Unknown]
  - Myoclonic epilepsy [Unknown]
  - Back pain [Unknown]
  - Hyperhidrosis [Unknown]
  - Pain in extremity [Unknown]
  - Tachycardia [Unknown]
  - Accidental exposure to product [Unknown]
